FAERS Safety Report 17443425 (Version 1)
Quarter: 2020Q1

REPORT INFORMATION
  Report Type: Spontaneous
  Country: US (occurrence: US)
  Receive Date: 20200206
  Receipt Date: 20200206
  Transmission Date: 20200409
  Serious: Yes (Death)
  Sender: FDA-Public Use
  Company Number: None

PATIENT
  Age: 72 Year
  Sex: Male

DRUGS (19)
  1. AMLODIPINE [Concomitant]
     Active Substance: AMLODIPINE BESYLATE
  2. CARVDILOL [Concomitant]
  3. TRAMADOL HCL [Concomitant]
     Active Substance: TRAMADOL HYDROCHLORIDE
  4. FLUOCINONIDE. [Concomitant]
     Active Substance: FLUOCINONIDE
  5. HYDRALAZINE [Concomitant]
     Active Substance: HYDRALAZINE HYDROCHLORIDE
  6. TORSEMIDE. [Concomitant]
     Active Substance: TORSEMIDE
  7. CLONIDINE. [Concomitant]
     Active Substance: CLONIDINE
  8. INSULIN SYRG MIS [Concomitant]
  9. ONETOUCH TES VERIO [Concomitant]
  10. POT CL MICRO [Concomitant]
  11. SULGASALAZIN [Concomitant]
  12. PROCRIT [Suspect]
     Active Substance: ERYTHROPOIETIN
     Indication: NEPHROGENIC ANAEMIA
     Route: 058
     Dates: start: 20190419, end: 20200120
  13. FEBUXOSTAT. [Concomitant]
     Active Substance: FEBUXOSTAT
  14. FUROSEMIDE. [Concomitant]
     Active Substance: FUROSEMIDE
  15. GABAPENTIN. [Concomitant]
     Active Substance: GABAPENTIN
  16. FOLIC ACID. [Concomitant]
     Active Substance: FOLIC ACID
  17. PREDNISONE. [Concomitant]
     Active Substance: PREDNISONE
  18. METOLAZONE. [Concomitant]
     Active Substance: METOLAZONE
  19. TAMSULOSIN [Concomitant]
     Active Substance: TAMSULOSIN

REACTIONS (1)
  - Death [None]

NARRATIVE: CASE EVENT DATE: 20200120
